FAERS Safety Report 7530530-5 (Version None)
Quarter: 2011Q2

REPORT INFORMATION
  Report Type: 
  Country: None (occurrence: None)
  Receive Date: 20110607
  Receipt Date: 20110525
  Transmission Date: 20111010
  Serious: Yes (Other)
  Sender: FDA-Public Use
  Company Number: US-AMGEN-USASP2011027674

PATIENT
  Age: 40 Year
  Sex: Male

DRUGS (4)
  1. KLONOPIN [Concomitant]
  2. NEURONTIN [Concomitant]
  3. TOPROL-XL [Concomitant]
  4. ENBREL [Suspect]
     Indication: PSORIASIS
     Dosage: 50 MG, QWK
     Dates: start: 20100101, end: 20110521

REACTIONS (7)
  - ANXIETY [None]
  - HYPERSENSITIVITY [None]
  - RASH [None]
  - DERMATITIS [None]
  - PARAESTHESIA ORAL [None]
  - PSORIASIS [None]
  - PRURITUS [None]
